FAERS Safety Report 8780043 (Version 2)
Quarter: 2012Q4

REPORT INFORMATION
  Report Type: 
  Country: IT (occurrence: IT)
  Receive Date: 20120912
  Receipt Date: 20120923
  Transmission Date: 20130627
  Serious: Yes (Disabling)
  Sender: FDA-Public Use
  Company Number: IT-MYLANLABS-2012S1018263

PATIENT
  Age: 63 Year
  Sex: Female

DRUGS (1)
  1. RAMIPRIL [Suspect]
     Indication: PRODUCT USED FOR UNKNOWN INDICATION

REACTIONS (6)
  - Deafness unilateral [Not Recovered/Not Resolved]
  - Nausea [Recovered/Resolved with Sequelae]
  - Retching [Recovered/Resolved with Sequelae]
  - Vision blurred [Recovered/Resolved with Sequelae]
  - Vomiting [Recovered/Resolved with Sequelae]
  - Dizziness [Recovered/Resolved with Sequelae]
